FAERS Safety Report 21050278 (Version 2)
Quarter: 2022Q3

REPORT INFORMATION
  Report Type: Report from Study
  Country: US (occurrence: US)
  Receive Date: 20220706
  Receipt Date: 20220930
  Transmission Date: 20221027
  Serious: No
  Sender: FDA-Public Use
  Company Number: US-BIOVITRUM-2022US04554

PATIENT
  Sex: Female

DRUGS (2)
  1. KINERET [Suspect]
     Active Substance: ANAKINRA
     Indication: Rheumatoid arthritis
     Dates: start: 20220315
  2. KINERET [Suspect]
     Active Substance: ANAKINRA
     Dates: start: 202203

REACTIONS (18)
  - Wheezing [Unknown]
  - Thyroid mass [Unknown]
  - Decreased appetite [Unknown]
  - Weight increased [Unknown]
  - Fatigue [Unknown]
  - Arthralgia [Unknown]
  - Tremor [Unknown]
  - Asthenia [Unknown]
  - Joint injury [Unknown]
  - Body temperature fluctuation [Unknown]
  - Skin irritation [Unknown]
  - Crystal arthropathy [Unknown]
  - Musculoskeletal discomfort [Unknown]
  - Balance disorder [Unknown]
  - Headache [Unknown]
  - Injection site pain [Unknown]
  - Drug ineffective [Unknown]
  - Syringe issue [Unknown]
